FAERS Safety Report 21792220 (Version 3)
Quarter: 2025Q4

REPORT INFORMATION
  Report Type: Spontaneous
  Country: US (occurrence: US)
  Receive Date: 20221229
  Receipt Date: 20251106
  Transmission Date: 20260118
  Serious: Yes (Other)
  Sender: SANOFI AVENTIS
  Company Number: US-SA-SAC20221226000943

PATIENT
  Age: 58 Year
  Sex: Female

DRUGS (1)
  1. DUPIXENT [Suspect]
     Active Substance: DUPILUMAB
     Indication: Asthma
     Dosage: 300 MG, QOW
     Route: 058
     Dates: end: 202307

REACTIONS (5)
  - Hip surgery [Unknown]
  - Foot operation [Unknown]
  - Sensitivity to weather change [Unknown]
  - Injection site pain [Unknown]
  - Asthma [Unknown]

NARRATIVE: CASE EVENT DATE: 20230705
